FAERS Safety Report 22390156 (Version 2)
Quarter: 2023Q2

REPORT INFORMATION
  Report Type: Spontaneous
  Country: US (occurrence: US)
  Receive Date: 20230531
  Receipt Date: 20230605
  Transmission Date: 20230722
  Serious: Yes (Life-Threatening, Other)
  Sender: FDA-Public Use
  Company Number: US-PFIZER INC-202300204317

PATIENT
  Age: 12 Year
  Sex: Female

DRUGS (2)
  1. MILRINONE [Suspect]
     Active Substance: MILRINONE
     Indication: Cardiac dysfunction
     Dosage: UNK
  2. MILRINONE [Suspect]
     Active Substance: MILRINONE
     Indication: Cardiogenic shock

REACTIONS (2)
  - Platelet aggregation inhibition [Unknown]
  - Haemorrhage [Unknown]
